FAERS Safety Report 8993380 (Version 2)
Quarter: 2013Q2

REPORT INFORMATION
  Report Type: Report from Study
  Country: JP (occurrence: JP)
  Receive Date: 20130102
  Receipt Date: 20130403
  Transmission Date: 20140414
  Serious: Yes (Hospitalization)
  Sender: FDA-Public Use
  Company Number: JP-PFIZER INC-2012332428

PATIENT
  Age: 75 Year
  Sex: Male
  Weight: 66 kg

DRUGS (7)
  1. FOSPHENYTOIN SODIUM [Suspect]
     Indication: PROPHYLAXIS
     Dosage: 11.4 MG/KG AT 12.5 MG/MIN IN 0.9% PHYSIOLOGICAL SALINE (1:10)
     Route: 051
     Dates: start: 20121115, end: 20121115
  2. FOSPHENYTOIN SODIUM [Suspect]
     Dosage: 11.4 MG/KG AT 12.5 MG/MIN IN 0.9% PHYSIOLOGICAL SALINE (1:10)
     Route: 051
     Dates: start: 20121116
  3. FOSPHENYTOIN SODIUM [Suspect]
     Dosage: 11.4 MG/KG AT 12.5 MG/MIN IN 0.9% PHYSIOLOGICAL SALINE (1:10)
     Route: 051
     Dates: start: 20121120, end: 20121120
  4. FOSPHENYTOIN SODIUM [Suspect]
     Dosage: 7.5 MG/KG AT 8.3 MG/MIN IN 0.9% PHYSIOLOGICAL SALINE (1:16)
     Route: 051
     Dates: start: 20121121, end: 2012
  5. CEFAZOLIN SODIUM [Concomitant]
     Indication: PROPHYLAXIS
     Dosage: 2 G, UNK
     Route: 042
     Dates: start: 20121115, end: 20121118
  6. DEPAKENE [Concomitant]
     Dosage: 300 MG, UNK
     Dates: start: 20121116, end: 20121121
  7. DEPAKENE [Concomitant]
     Indication: EPILEPSY
     Dosage: 300 MG, UNK
     Route: 048
     Dates: end: 20121121

REACTIONS (1)
  - Urinary bladder haemorrhage [Recovering/Resolving]
